FAERS Safety Report 19769180 (Version 1)
Quarter: 2021Q3

REPORT INFORMATION
  Report Type: Spontaneous
  Country: FR (occurrence: FR)
  Receive Date: 20210831
  Receipt Date: 20210831
  Transmission Date: 20211014
  Serious: Yes (Hospitalization)
  Sender: FDA-Public Use
  Company Number: FR-TEVA-2021-FR-1945733

PATIENT
  Age: 23 Year
  Sex: Male

DRUGS (5)
  1. LSD [Suspect]
     Active Substance: LYSERGIDE
     Route: 065
     Dates: start: 202107
  2. CRACK (COCAINE BASEE) [Suspect]
     Active Substance: COCAINE
     Route: 065
     Dates: start: 2021
  3. CANNABIS [Suspect]
     Active Substance: CANNABIS SATIVA SUBSP. INDICA TOP
     Route: 055
     Dates: start: 2021
  4. DIAZEPAM. [Suspect]
     Active Substance: DIAZEPAM
     Dosage: 4 TABLETS (DOSAGE NOT SPECIFIED)
     Route: 048
     Dates: start: 20210727, end: 20210727
  5. COCAINE [Suspect]
     Active Substance: COCAINE
     Route: 065
     Dates: start: 2021

REACTIONS (4)
  - Intentional product misuse [Unknown]
  - Depressed level of consciousness [Recovered/Resolved]
  - Substance use disorder [Unknown]
  - Anxiety [Recovered/Resolved]

NARRATIVE: CASE EVENT DATE: 202107
